FAERS Safety Report 9881425 (Version 1)
Quarter: 2014Q1

REPORT INFORMATION
  Report Type: Spontaneous
  Country: JP (occurrence: JP)
  Receive Date: 20140207
  Receipt Date: 20140207
  Transmission Date: 20141002
  Serious: Yes (Death, Other)
  Sender: FDA-Public Use
  Company Number: JP-BAXTER-2014BAX005969

PATIENT
  Age: 3 Month
  Sex: Male

DRUGS (3)
  1. GAMMAGARD FOR INJECTION 2.5G [Suspect]
     Indication: KAWASAKI^S DISEASE
     Route: 042
  2. METHYLPREDNISOLONE [Concomitant]
     Indication: KAWASAKI^S DISEASE
  3. ASPIRIN [Concomitant]
     Indication: KAWASAKI^S DISEASE

REACTIONS (3)
  - Acute myocardial infarction [Fatal]
  - Ventricular fibrillation [Unknown]
  - Aneurysm [Unknown]
